FAERS Safety Report 6235156-1 (Version None)
Quarter: 2009Q2

REPORT INFORMATION
  Report Type: 
  Country: None (occurrence: None)
  Receive Date: 20090618
  Receipt Date: 20090608
  Transmission Date: 20091009
  Serious: Yes (Death, Hospitalization, Other)
  Sender: FDA-Public Use
  Company Number: IE-PFIZER INC-2006115478

PATIENT
  Age: 73 Year

DRUGS (8)
  1. LIPITOR [Suspect]
     Indication: BLOOD CHOLESTEROL INCREASED
     Route: 048
     Dates: start: 20000701, end: 20060801
  2. FUSIDIC ACID [Interacting]
     Indication: INFECTION
     Route: 048
     Dates: start: 20060801, end: 20060801
  3. FUSIDIC ACID [Interacting]
     Indication: OSTEOMYELITIS
  4. METRONIDAZOLE [Concomitant]
     Route: 042
     Dates: start: 20060801, end: 20060901
  5. FLOXACILLIN SODIUM [Concomitant]
     Route: 042
     Dates: start: 20060801, end: 20060901
  6. BENZATHINE PENICILLIN G [Concomitant]
     Route: 042
     Dates: start: 20060801, end: 20060901
  7. LANSOPRAZOLE [Concomitant]
     Route: 048
  8. ACETYLSALICYLIC ACID [Concomitant]
     Route: 048

REACTIONS (10)
  - CARDIAC ARREST [None]
  - DRUG INTERACTION [None]
  - INFECTION [None]
  - PARALYSIS [None]
  - PERIPHERAL VASCULAR DISORDER [None]
  - PNEUMONIA [None]
  - RENAL FAILURE [None]
  - RESPIRATORY FAILURE [None]
  - RHABDOMYOLYSIS [None]
  - SEPSIS [None]
